FAERS Safety Report 7176738-2 (Version None)
Quarter: 2010Q4

REPORT INFORMATION
  Report Type: 
  Country: None (occurrence: None)
  Receive Date: 20101216
  Receipt Date: 20101216
  Transmission Date: 20110411
  Serious: Yes (Hospitalization)
  Sender: FDA-Public Use
  Company Number: None

PATIENT
  Age: 38 Year
  Sex: Male
  Weight: 95 kg

DRUGS (2)
  1. DISULFIRAM [Suspect]
     Dosage: 250 MG EVERY DAY PO
     Route: 048
     Dates: start: 20100518, end: 20100528
  2. MIRTAZAPINE [Suspect]
     Dosage: 30 MG HS PO
     Route: 048
     Dates: start: 20100517, end: 20100528

REACTIONS (1)
  - CONVULSION [None]
